FAERS Safety Report 4850372-9 (Version None)
Quarter: 2005Q4

REPORT INFORMATION
  Report Type: 
  Country: None (occurrence: None)
  Receive Date: 20051123
  Receipt Date: 20050727
  Transmission Date: 20060501
  Serious: No
  Sender: FDA-Public Use
  Company Number: 215679

PATIENT
  Age: 66 Year
  Sex: Female
  Weight: 77.1 kg

DRUGS (5)
  1. RAPTIVA [Suspect]
     Indication: PSORIASIS
     Dosage: 0.8 ML, 1/WEEK, SUBCUTANEOUS
     Route: 058
     Dates: start: 20050317, end: 20050615
  2. LIPITOR [Concomitant]
  3. TOPROL-XL [Concomitant]
  4. VITAMIN B12 [Concomitant]
  5. COUMADIN [Concomitant]

REACTIONS (1)
  - ERYTHRODERMIC PSORIASIS [None]
